FAERS Safety Report 11832269 (Version 1)
Quarter: 2015Q4

REPORT INFORMATION
  Report Type: Report from Study
  Country: KR (occurrence: KR)
  Receive Date: 20151214
  Receipt Date: 20151214
  Transmission Date: 20160305
  Serious: Yes (Death, Other)
  Sender: FDA-Public Use
  Company Number: KR-BRISTOL-MYERS SQUIBB COMPANY-BMS-2015-085808

PATIENT
  Sex: Male

DRUGS (1)
  1. APIXABAN [Suspect]
     Active Substance: APIXABAN
     Indication: CEREBROVASCULAR ACCIDENT PROPHYLAXIS
     Dosage: 5 MG, BID
     Route: 048
     Dates: start: 20150710, end: 20151127

REACTIONS (4)
  - Hemiparesis [Not Recovered/Not Resolved]
  - Coma [Fatal]
  - General physical health deterioration [None]
  - Cerebral haemorrhage [Fatal]

NARRATIVE: CASE EVENT DATE: 20151203
